FAERS Safety Report 6141197-5 (Version None)
Quarter: 2009Q2

REPORT INFORMATION
  Report Type: 
  Country: None (occurrence: None)
  Receive Date: 20090402
  Receipt Date: 20090330
  Transmission Date: 20091009
  Serious: Yes (Other)
  Sender: FDA-Public Use
  Company Number: US-ASTRAZENECA-2008UW26762

PATIENT
  Age: 17127 Day
  Sex: Female
  Weight: 88.5 kg

DRUGS (6)
  1. SEROQUEL [Suspect]
     Indication: DEPRESSION
     Dosage: 25 TO 200 MG
     Route: 048
     Dates: start: 20021119, end: 20050713
  2. GEODON [Concomitant]
     Dates: start: 20070101
  3. RISPERDAL [Concomitant]
     Dates: start: 20051102, end: 20060501
  4. ZYPREXA [Concomitant]
     Dosage: 10 TO 50 MG
     Dates: start: 20020101, end: 20030101
  5. ZOLOFT [Concomitant]
  6. TRAZODONE [Concomitant]
     Dates: start: 20050101, end: 20060101

REACTIONS (4)
  - DIABETES MELLITUS [None]
  - NAUSEA [None]
  - PAIN [None]
  - RENAL CANCER [None]
